FAERS Safety Report 4638122-2 (Version None)
Quarter: 2005Q2

REPORT INFORMATION
  Report Type: 
  Country: None (occurrence: None)
  Receive Date: 20050418
  Receipt Date: 20050314
  Transmission Date: 20051028
  Serious: Yes (Other)
  Sender: FDA-Public Use
  Company Number: PHNU2005DE01353

PATIENT
  Sex: Male
  Weight: 78 kg

DRUGS (3)
  1. MYFORTIC [Suspect]
     Indication: MYASTHENIA GRAVIS
     Dosage: 1 DF, TID
     Route: 048
     Dates: start: 20031101
  2. CORTISONE [Suspect]
     Dosage: 3.5 MG DAILY
  3. MARCUMAR [Concomitant]

REACTIONS (3)
  - DRY MOUTH [None]
  - REFRACTION DISORDER [None]
  - VISION BLURRED [None]
